FAERS Safety Report 4798277-6 (Version None)
Quarter: 2005Q4

REPORT INFORMATION
  Report Type: 
  Country: None (occurrence: None)
  Receive Date: 20051006
  Receipt Date: 20051006
  Transmission Date: 20060501
  Serious: Yes (Life-Threatening)
  Sender: FDA-Public Use
  Company Number: None

PATIENT
  Age: 58 Year
  Sex: Male
  Weight: 79 kg

DRUGS (15)
  1. LINEZOLID [Suspect]
     Indication: ENTEROCOCCAL INFECTION
     Dosage: 600MG IV Q 12 HOURS
     Route: 042
     Dates: start: 20050112, end: 20050124
  2. LINEZOLID [Suspect]
     Indication: WOUND INFECTION
     Dosage: 600MG IV Q 12 HOURS
     Route: 042
     Dates: start: 20050112, end: 20050124
  3. TACROLIMUS [Concomitant]
  4. MYCOPHENOLATE [Concomitant]
  5. PERCOCET [Concomitant]
  6. INSULIN [Concomitant]
  7. TPN [Concomitant]
  8. MORPHINE [Concomitant]
  9. LANSOPRAZOLE [Concomitant]
  10. PHENYLEPHRINE [Concomitant]
  11. EPINEPHRINE [Concomitant]
  12. ACYCLOVIR [Concomitant]
  13. BACTRIM [Concomitant]
  14. MEROPENEM [Concomitant]
  15. CASPOFUNGIN [Concomitant]

REACTIONS (3)
  - DISSEMINATED INTRAVASCULAR COAGULATION [None]
  - SEPSIS [None]
  - THROMBOCYTOPENIA [None]
